FAERS Safety Report 8475434-9 (Version None)
Quarter: 2012Q2

REPORT INFORMATION
  Report Type: 
  Country: None (occurrence: None)
  Receive Date: 20120628
  Receipt Date: 20110725
  Transmission Date: 20120825
  Serious: Yes (Hospitalization)
  Sender: FDA-Public Use
  Company Number: US-ROCHE-1081700

PATIENT
  Sex: Female
  Weight: 93.1 kg

DRUGS (15)
  1. ARAVA [Suspect]
     Indication: PRODUCT USED FOR UNKNOWN INDICATION
     Dates: start: 20081028
  2. MORPHINE [Concomitant]
  3. PEGFILGRASTIM [Suspect]
     Indication: PRODUCT USED FOR UNKNOWN INDICATION
  4. CITALOPRAM HYDROBROMIDE [Concomitant]
  5. CLONIDINE [Concomitant]
  6. ACECLOFENAC [Concomitant]
  7. ENBREL [Suspect]
     Indication: RHEUMATOID ARTHRITIS
     Dates: start: 20090212
  8. ADVAIR DISKUS 100/50 [Concomitant]
  9. SENNA CONCENTRATES [Concomitant]
  10. ALENDRONATE SODIUM [Concomitant]
  11. STATEX (UNITED STATES) [Concomitant]
  12. BEVACIZUMAB [Suspect]
     Indication: PRODUCT USED FOR UNKNOWN INDICATION
  13. METHOTREXATE [Suspect]
     Indication: PRODUCT USED FOR UNKNOWN INDICATION
     Route: 048
     Dates: start: 20080520
  14. LIPITOR [Concomitant]
  15. OXYBUTYNIN [Concomitant]

REACTIONS (2)
  - CHOLECYSTECTOMY [None]
  - CHOLECYSTITIS INFECTIVE [None]
